FAERS Safety Report 20941526 (Version 1)
Quarter: 2022Q2

REPORT INFORMATION
  Report Type: Report from Study
  Country: US (occurrence: US)
  Receive Date: 20220610
  Receipt Date: 20220610
  Transmission Date: 20220720
  Serious: Yes (Other)
  Sender: FDA-Public Use
  Company Number: US-UCBSA-2022030940

PATIENT
  Sex: Male

DRUGS (1)
  1. LEVETIRACETAM [Suspect]
     Active Substance: LEVETIRACETAM
     Indication: Product used for unknown indication
     Dosage: UNK

REACTIONS (6)
  - Cerebrovascular accident [Unknown]
  - Irritability [Unknown]
  - Seizure [Unknown]
  - Fall [Unknown]
  - Head injury [Unknown]
  - Diplopia [Unknown]
